FAERS Safety Report 8936019 (Version 4)
Quarter: 2013Q3

REPORT INFORMATION
  Report Type: Spontaneous
  Country: CA (occurrence: CA)
  Receive Date: 20121130
  Receipt Date: 20130722
  Transmission Date: 20140515
  Serious: Yes (Death)
  Sender: FDA-Public Use
  Company Number: CA-B.I. PHARMACEUTICALS,INC./RIDGEFIELD-2012-BI-01796BP

PATIENT
  Sex: Male
  Weight: 79.8 kg

DRUGS (1)
  1. MIRAPEX [Suspect]
     Indication: PARKINSON^S DISEASE
     Dates: end: 200312

REACTIONS (2)
  - Hepatic cancer metastatic [Fatal]
  - Gambling [Unknown]
